FAERS Safety Report 6198457-1 (Version None)
Quarter: 2009Q2

REPORT INFORMATION
  Report Type: 
  Country: None (occurrence: None)
  Receive Date: 20090521
  Receipt Date: 20090506
  Transmission Date: 20091009
  Serious: Yes (Other)
  Sender: FDA-Public Use
  Company Number: CA-GENENTECH-282228

PATIENT
  Sex: Male

DRUGS (2)
  1. RANIBIZUMAB [Suspect]
     Indication: MACULAR DEGENERATION
  2. ERYTHROMYCIN [Concomitant]
     Indication: PREMEDICATION

REACTIONS (4)
  - CORNEAL EROSION [None]
  - EYE DISCHARGE [None]
  - EYE PAIN [None]
  - OCULAR HYPERAEMIA [None]
